FAERS Safety Report 7586032-3 (Version None)
Quarter: 2011Q3

REPORT INFORMATION
  Report Type: 
  Country: None (occurrence: None)
  Receive Date: 20110701
  Receipt Date: 20110628
  Transmission Date: 20111222
  Serious: Yes (Death, Hospitalization)
  Sender: FDA-Public Use
  Company Number: US-ABBOTT-11P-163-0834875-00

PATIENT
  Sex: Male
  Weight: 63.56 kg

DRUGS (6)
  1. HUMIRA [Suspect]
     Indication: PSORIASIS
  2. LIPITOR [Concomitant]
     Indication: BLOOD CHOLESTEROL INCREASED
  3. UNKNOWN INHALER [Concomitant]
     Indication: CHRONIC OBSTRUCTIVE PULMONARY DISEASE
  4. LISINOPRIL [Concomitant]
     Indication: HYPERTENSION
  5. FLOMAX [Concomitant]
     Indication: DYSURIA
  6. HUMIRA [Suspect]
     Indication: PSORIATIC ARTHROPATHY
     Dates: start: 20080301, end: 20110627

REACTIONS (9)
  - CARDIAC FAILURE [None]
  - HYPOTENSION [None]
  - OXYGEN SATURATION DECREASED [None]
  - DYSPNOEA [None]
  - ANAEMIA [None]
  - ASTHENIA [None]
  - DYSURIA [None]
  - RENAL IMPAIRMENT [None]
  - HEPATIC FUNCTION ABNORMAL [None]
